FAERS Safety Report 15765225 (Version 1)
Quarter: 2018Q4

REPORT INFORMATION
  Report Type: Spontaneous
  Country: CN (occurrence: CN)
  Receive Date: 20181227
  Receipt Date: 20181227
  Transmission Date: 20190205
  Serious: Yes (Death, Hospitalization, Other)
  Sender: FDA-Public Use
  Company Number: CN-SA-2018SA389101

PATIENT
  Age: 45 Year
  Sex: Male

DRUGS (2)
  1. EFLORNITHINE HYDROCHLORIDE [Suspect]
     Active Substance: EFLORNITHINE HYDROCHLORIDE
     Dosage: HALF COURSE TREATMENT
     Route: 042
     Dates: start: 2014, end: 2014
  2. EFLORNITHINE HYDROCHLORIDE [Suspect]
     Active Substance: EFLORNITHINE HYDROCHLORIDE
     Indication: TRYPANOSOMIASIS
     Dosage: 100 MG/KG, QID
     Route: 042
     Dates: start: 2014, end: 2014

REACTIONS (9)
  - Treatment failure [Fatal]
  - Sleep disorder [Fatal]
  - Fatigue [Fatal]
  - Loss of consciousness [Fatal]
  - Brain death [Fatal]
  - Disease recurrence [Fatal]
  - Gait disturbance [Fatal]
  - Trypanosomiasis [Fatal]
  - Condition aggravated [Fatal]

NARRATIVE: CASE EVENT DATE: 2014
